FAERS Safety Report 10841727 (Version 1)
Quarter: 2015Q1

REPORT INFORMATION
  Report Type: Report from Study
  Country: US (occurrence: US)
  Receive Date: 20150220
  Receipt Date: 20150220
  Transmission Date: 20150721
  Serious: No
  Sender: FDA-Public Use
  Company Number: US-ABBVIE-14P-163-1267471-00

PATIENT
  Age: 43 Year
  Sex: Female

DRUGS (7)
  1. HUMIRA [Suspect]
     Active Substance: ADALIMUMAB
     Indication: CROHN^S DISEASE
     Dosage: LOADING DOSE
     Dates: start: 20140623, end: 20140623
  2. HUMIRA [Suspect]
     Active Substance: ADALIMUMAB
  3. ANTI-ITCH CREAM [Suspect]
     Active Substance: UNSPECIFIED INGREDIENT
     Indication: PRURITUS
     Dates: start: 201407
  4. PROVERA [Concomitant]
     Active Substance: MEDROXYPROGESTERONE ACETATE
     Indication: CONTRACEPTION
  5. LEVOTHYROXINE [Concomitant]
     Active Substance: LEVOTHYROXINE
     Indication: PRODUCT USED FOR UNKNOWN INDICATION
  6. HUMIRA [Suspect]
     Active Substance: ADALIMUMAB
     Dates: start: 20140721, end: 20140721
  7. HUMIRA [Suspect]
     Active Substance: ADALIMUMAB
     Dosage: LOADING DOSE
     Dates: start: 20140707, end: 20140707

REACTIONS (7)
  - Injection site pruritus [Recovered/Resolved]
  - Incorrect dose administered [Unknown]
  - Injection site pain [Recovered/Resolved]
  - Injection site swelling [Unknown]
  - Injection site erythema [Recovering/Resolving]
  - Incorrect product storage [Unknown]
  - Drug ineffective [Unknown]

NARRATIVE: CASE EVENT DATE: 20140623
